FAERS Safety Report 25464662 (Version 2)
Quarter: 2025Q3

REPORT INFORMATION
  Report Type: Spontaneous
  Country: US (occurrence: US)
  Receive Date: 20250621
  Receipt Date: 20250809
  Transmission Date: 20251020
  Serious: Yes (Congenital Anomaly)
  Sender: ALEXION PHARMACEUTICALS
  Company Number: US-AstraZeneca-CH-00895482A

PATIENT
  Sex: Male

DRUGS (1)
  1. KOSELUGO [Suspect]
     Active Substance: SELUMETINIB
     Route: 065

REACTIONS (1)
  - Subdural haematoma [Recovered/Resolved]
